FAERS Safety Report 19093956 (Version 1)
Quarter: 2021Q2

REPORT INFORMATION
  Report Type: Spontaneous
  Country: CA (occurrence: CA)
  Receive Date: 20210405
  Receipt Date: 20210405
  Transmission Date: 20210717
  Serious: Yes (Hospitalization)
  Sender: FDA-Public Use
  Company Number: CA-TEVA-2021-CA-1895799

PATIENT
  Age: 45 Year
  Sex: Female

DRUGS (2)
  1. METHYLPREDNISOLONE. [Suspect]
     Active Substance: METHYLPREDNISOLONE
     Indication: CONCENTRIC SCLEROSIS
     Dosage: 1 GRAM DAILY; FOR 5 DAYS
     Route: 042
  2. NATALIZUMAB [Suspect]
     Active Substance: NATALIZUMAB
     Indication: CONCENTRIC SCLEROSIS
     Dosage: 300MG ONCE IN FOUR WEEKS
     Route: 042

REACTIONS (4)
  - Central nervous system lymphoma [Recovering/Resolving]
  - Non-Hodgkin^s lymphoma [Recovering/Resolving]
  - Epstein-Barr virus associated lymphoma [Recovering/Resolving]
  - B-cell lymphoma [Recovering/Resolving]
